FAERS Safety Report 12514254 (Version 1)
Quarter: 2016Q2

REPORT INFORMATION
  Report Type: Spontaneous
  Country: US (occurrence: None)
  Receive Date: 20160629
  Receipt Date: 20160629
  Transmission Date: 20160815
  Serious: No
  Sender: FDA-Public Use
  Company Number: None

PATIENT
  Age: 28 Year
  Sex: Male

DRUGS (5)
  1. METOPROLOL. [Concomitant]
     Active Substance: METOPROLOL
  2. IBUPROFEN. [Concomitant]
     Active Substance: IBUPROFEN
  3. HALOPERIDOL. [Suspect]
     Active Substance: HALOPERIDOL
     Route: 048
  4. BENZTROPINE [Concomitant]
     Active Substance: BENZTROPINE
  5. CLOZAPINE. [Concomitant]
     Active Substance: CLOZAPINE

REACTIONS (2)
  - Eye movement disorder [None]
  - Catatonia [None]

NARRATIVE: CASE EVENT DATE: 20151025
